FAERS Safety Report 10760258 (Version 3)
Quarter: 2015Q2

REPORT INFORMATION
  Report Type: Spontaneous
  Country: GB (occurrence: GB)
  Receive Date: 20150204
  Receipt Date: 20150623
  Transmission Date: 20150821
  Serious: Yes (Other)
  Sender: FDA-Public Use
  Company Number: GB-AMGEN-GBRSP2015009837

PATIENT
  Age: 82 Year
  Sex: Female

DRUGS (3)
  1. ASPIRIN                            /00002701/ [Concomitant]
     Active Substance: ASPIRIN
     Indication: PROPHYLAXIS
     Dosage: 75 MG, BEEN ON IT FOR A WHILE NOW
     Route: 048
     Dates: start: 1996
  2. LEVOTHYROXINE [Concomitant]
     Active Substance: LEVOTHYROXINE
     Indication: HYPERTHYROIDISM
     Dosage: 75 UG
     Route: 048
     Dates: start: 2005
  3. ENBREL [Suspect]
     Active Substance: ETANERCEPT
     Indication: RHEUMATOID ARTHRITIS
     Dosage: 50 MG, QWK
     Route: 065
     Dates: start: 200903

REACTIONS (2)
  - Renal impairment [Unknown]
  - Epidermal growth factor receptor decreased [Recovered/Resolved]

NARRATIVE: CASE EVENT DATE: 2014
